FAERS Safety Report 8402133-1 (Version None)
Quarter: 2012Q2

REPORT INFORMATION
  Report Type: 
  Country: None (occurrence: None)
  Receive Date: 20120601
  Receipt Date: 20120524
  Transmission Date: 20120825
  Serious: Yes (Disabling)
  Sender: FDA-Public Use
  Company Number: CA-CELGENEUS-028-CCAZA-11082555

PATIENT
  Sex: Female
  Weight: 69.6 kg

DRUGS (10)
  1. AZACITIDINE [Suspect]
     Dosage: 75 MILLIGRAM/SQ. METER
     Route: 058
     Dates: start: 20110727, end: 20110802
  2. LACTULOSE [Concomitant]
     Dosage: 15 MILLILITER
     Route: 048
     Dates: start: 20110501, end: 20110519
  3. COUMADIN [Concomitant]
     Dosage: 5 MILLIGRAM
     Route: 065
     Dates: start: 20110810, end: 20110811
  4. VITAMIN D [Concomitant]
     Indication: SUPPLEMENTATION THERAPY
     Dosage: 1000 MILLIGRAM
     Route: 048
     Dates: start: 20100101
  5. AZACITIDINE [Suspect]
     Dosage: 75 MILLIGRAM/SQ. METER
     Route: 058
     Dates: start: 20110209, end: 20110215
  6. DALTEPARIN SODIUM [Concomitant]
     Dosage: 1400 UNITS
     Route: 058
  7. LACTULOSE [Concomitant]
     Indication: CONSTIPATION
     Dosage: 15 MILLILITER
     Route: 048
     Dates: start: 20100501, end: 20110901
  8. ASPIRIN [Concomitant]
     Dosage: 81 MILLIGRAM
     Route: 048
     Dates: start: 20110810, end: 20110811
  9. COUMADIN [Concomitant]
     Dosage: 2 MILLIGRAM
     Route: 065
     Dates: start: 20110819
  10. CELEBREX [Concomitant]
     Dosage: 200 MILLIGRAM
     Route: 048
     Dates: start: 20110810, end: 20110811

REACTIONS (1)
  - PERIPHERAL ISCHAEMIA [None]
